FAERS Safety Report 6576594-7 (Version None)
Quarter: 2010Q1

REPORT INFORMATION
  Report Type: 
  Country: None (occurrence: None)
  Receive Date: 20100210
  Receipt Date: 20100201
  Transmission Date: 20100710
  Serious: Yes (Other)
  Sender: FDA-Public Use
  Company Number: PHHY2010GB01775

PATIENT
  Sex: Male

DRUGS (4)
  1. CLOZARIL [Suspect]
     Indication: SCHIZOPHRENIA
     Dosage: UNK
     Route: 048
     Dates: start: 20040128
  2. CLOZARIL [Suspect]
     Dosage: 400 MG, DAILY
     Dates: start: 20050101
  3. CLOZARIL [Suspect]
     Dosage: 350 MG/ DAILY
     Dates: start: 20071121
  4. CLOZARIL [Suspect]
     Dosage: 275 MG, DAILY
     Dates: start: 20090101

REACTIONS (14)
  - BRADYPHRENIA [None]
  - CEREBRAL INFARCTION [None]
  - CEREBRAL ISCHAEMIA [None]
  - CEREBROVASCULAR ACCIDENT [None]
  - COUGH [None]
  - DEPRESSION [None]
  - DISTURBANCE IN ATTENTION [None]
  - DYSARTHRIA [None]
  - DYSGRAPHIA [None]
  - MALAISE [None]
  - MEMORY IMPAIRMENT [None]
  - MOOD ALTERED [None]
  - PSYCHOMOTOR SKILLS IMPAIRED [None]
  - SPEECH DISORDER [None]
